FAERS Safety Report 6788357-8 (Version None)
Quarter: 2010Q2

REPORT INFORMATION
  Report Type: 
  Country: None (occurrence: None)
  Receive Date: 20100623
  Receipt Date: 20080510
  Transmission Date: 20101027
  Serious: No
  Sender: FDA-Public Use
  Company Number: US-PFIZER INC-2008011489

PATIENT
  Age: 32 Year
  Sex: Female

DRUGS (1)
  1. DEPO-PROVERA SUSPENSION/INJ [Suspect]
     Dates: start: 20071129

REACTIONS (6)
  - ABDOMINAL PAIN [None]
  - CRYING [None]
  - HEADACHE [None]
  - INJECTION SITE HAEMATOMA [None]
  - MIGRAINE [None]
  - WRONG DRUG ADMINISTERED [None]
